FAERS Safety Report 22145999 (Version 1)
Quarter: 2023Q1

REPORT INFORMATION
  Report Type: Spontaneous
  Country: GB (occurrence: GB)
  Receive Date: 20230328
  Receipt Date: 20230328
  Transmission Date: 20230417
  Serious: Yes (Hospitalization, Other)
  Sender: FDA-Public Use
  Company Number: GB-MYLANLABS-2023M1031711

PATIENT
  Age: 66 Year
  Sex: Male

DRUGS (12)
  1. PHENYTOIN [Interacting]
     Active Substance: PHENYTOIN
     Indication: Product used for unknown indication
     Dosage: 200 MILLIGRAM, QD (AT NIGHT, 1 IN 1 D)
     Route: 065
  2. PHENYTOIN [Interacting]
     Active Substance: PHENYTOIN
     Dosage: 50 MILLIGRAM, QD (AT NIGHT, 1 IN 1 D)
     Route: 065
  3. PHENYTOIN [Interacting]
     Active Substance: PHENYTOIN
     Dosage: 25 MILLIGRAM, QD (AT NIGHT, 1 IN 1 D)
     Route: 065
  4. CENOBAMATE [Interacting]
     Active Substance: CENOBAMATE
     Indication: Product used for unknown indication
     Dosage: 50 MILLIGRAM, QD (AT NIGHT, 1 IN 1 D)
     Route: 065
     Dates: start: 202211
  5. ATENOLOL [Concomitant]
     Active Substance: ATENOLOL
     Indication: Product used for unknown indication
     Dosage: 50 MILLIGRAM, QD (IN THE MORNING, 1 IN 1 D)
     Route: 065
  6. CALCIUM CARBONATE\CHOLECALCIFEROL [Concomitant]
     Active Substance: CALCIUM CARBONATE\CHOLECALCIFEROL
     Indication: Product used for unknown indication
     Dosage: 1 DOSAGE FORM, BID (2 IN 1 D)
     Route: 065
  7. ENOXAPARIN [Concomitant]
     Active Substance: ENOXAPARIN
     Indication: Product used for unknown indication
     Dosage: 40 MILLIGRAM, QD (AT TEA TIME, 1 IN 1 D)
     Route: 058
  8. FOLIC ACID [Concomitant]
     Active Substance: FOLIC ACID
     Indication: Product used for unknown indication
     Dosage: 5 MILLIGRAM, QD (IN THE MORNING, 1 IN 1 D)
     Route: 065
  9. MIDAZOLAM [Concomitant]
     Active Substance: MIDAZOLAM
     Indication: Product used for unknown indication
     Dosage: 10 MILLIGRAM PER MILLILITRE (CAN BE REPEATED ONCE ONLY) (10 MG,AS REQUIRED)
     Route: 065
  10. RUFINAMIDE [Concomitant]
     Active Substance: RUFINAMIDE
     Indication: Product used for unknown indication
     Dosage: 1000 MILLIGRAM, QD (400 MILLIGRAM IN MORNING, 600 MILLIGRAM AT NIGHT)
     Route: 065
  11. SIMVASTATIN [Concomitant]
     Active Substance: SIMVASTATIN
     Indication: Product used for unknown indication
     Dosage: 80 MILLIGRAM, QD (AT NIGHT,1 IN 1 D)
     Route: 065
  12. VALPROATE SODIUM [Concomitant]
     Active Substance: VALPROATE SODIUM
     Indication: Product used for unknown indication
     Dosage: 1 GRAM, QD (2 IN 1 D)
     Route: 065

REACTIONS (2)
  - Confusional state [Unknown]
  - Drug interaction [Unknown]

NARRATIVE: CASE EVENT DATE: 20230127
